FAERS Safety Report 21369206 (Version 1)
Quarter: 2022Q3

REPORT INFORMATION
  Report Type: Spontaneous
  Country: CN (occurrence: CN)
  Receive Date: 20220923
  Receipt Date: 20220923
  Transmission Date: 20221027
  Serious: Yes (Other)
  Sender: FDA-Public Use
  Company Number: None

PATIENT
  Age: 51 Year
  Sex: Female

DRUGS (4)
  1. CYCLOPHOSPHAMIDE [Suspect]
     Active Substance: CYCLOPHOSPHAMIDE
     Indication: Breast cancer female
     Dosage: 900MG QD, DILUTED WITH 0.9% SODIUM CHLORIDE 40ML
     Route: 042
     Dates: start: 20220830, end: 20220830
  2. SODIUM CHLORIDE [Suspect]
     Active Substance: SODIUM CHLORIDE
     Indication: Medication dilution
     Dosage: 40ML IN DILUTION WITH CYCLOPHOSPHAMIDE 900 MG
     Route: 042
     Dates: start: 20220830, end: 20220830
  3. SODIUM CHLORIDE [Suspect]
     Active Substance: SODIUM CHLORIDE
     Dosage: 100ML QD IN DILUTION WITH PACLITAXEL 200 MG
     Route: 041
     Dates: start: 20220830, end: 20220930
  4. PACLITAXEL [Suspect]
     Active Substance: PACLITAXEL
     Indication: Breast cancer female
     Dosage: 200MG QD, DILUTED WITH 0.9% SODIUM CHLORIDE 100ML
     Route: 041
     Dates: start: 20220830, end: 20220930

REACTIONS (2)
  - Granulocyte count decreased [Recovering/Resolving]
  - White blood cell count decreased [Unknown]

NARRATIVE: CASE EVENT DATE: 20220912
